FAERS Safety Report 8572511-9 (Version None)
Quarter: 2012Q2

REPORT INFORMATION
  Report Type: 
  Country: None (occurrence: None)
  Receive Date: 20120423
  Receipt Date: 20100608
  Transmission Date: 20120825
  Serious: Yes (Hospitalization)
  Sender: FDA-Public Use
  Company Number: PHHY2010US33179

PATIENT
  Age: 37 Year
  Sex: Female
  Weight: 66.2 kg

DRUGS (3)
  1. EXJADE [Suspect]
     Indication: HAEMOCHROMATOSIS
     Dosage: 1000 MG, DAILY, ORAL;  500 MG, BID
     Route: 048
     Dates: start: 20100419, end: 20100430
  2. SYNTHROID [Concomitant]
  3. BIRTH CONTROL PILLS [Concomitant]

REACTIONS (3)
  - DERMATITIS CONTACT [None]
  - HYPERSENSITIVITY [None]
  - RASH [None]
